FAERS Safety Report 8835135 (Version 1)
Quarter: 2012Q4

REPORT INFORMATION
  Report Type: Report from Study
  Country: RU (occurrence: RU)
  Receive Date: 20121011
  Receipt Date: 20121011
  Transmission Date: 20130627
  Serious: Yes (Death, Other)
  Sender: FDA-Public Use
  Company Number: RU-ROCHE-CID000000002172794

PATIENT
  Age: 48 Year
  Sex: Female

DRUGS (4)
  1. XELODA [Suspect]
     Indication: BREAST CANCER METASTATIC
     Route: 048
     Dates: start: 20080522, end: 20110119
  2. DOCETAXEL [Concomitant]
     Route: 065
     Dates: start: 20110401
  3. VINORELBINA [Concomitant]
     Route: 065
     Dates: start: 20110401
  4. ZOMETA [Concomitant]
     Route: 065
     Dates: start: 20110401, end: 20110715

REACTIONS (8)
  - Disease progression [Fatal]
  - Poisoning [Recovered/Resolved]
  - Palmar-plantar erythrodysaesthesia syndrome [Recovered/Resolved]
  - Hepatitis toxic [Recovered/Resolved]
  - Pancreatitis [Recovered/Resolved]
  - Leukopenia [Unknown]
  - Immunodeficiency [Unknown]
  - Stomatitis [Unknown]
